FAERS Safety Report 5155709-1 (Version None)
Quarter: 2006Q4

REPORT INFORMATION
  Report Type: 
  Country: None (occurrence: None)
  Receive Date: 20061114
  Receipt Date: 20060213
  Transmission Date: 20070319
  Serious: Yes (Other)
  Sender: FDA-Public Use
  Company Number: 2006023752

PATIENT
  Age: 44 Year
  Sex: Male
  Weight: 112.0385 kg

DRUGS (6)
  1. VIAGRA [Suspect]
     Indication: ERECTILE DYSFUNCTION
     Dosage: 50 MG (50 MG, AS NECESSARY), ORAL
     Route: 048
  2. PEGASYS [Suspect]
     Indication: HEPATITIS C
     Dates: start: 20051001
  3. VICODIN [Concomitant]
  4. CLONAZEPAM [Concomitant]
  5. SYNTHROID [Concomitant]
  6. DIPHENOXYLATE [Concomitant]

REACTIONS (3)
  - BLINDNESS [None]
  - HEPATITIS C [None]
  - MAJOR DEPRESSION [None]
